FAERS Safety Report 10539184 (Version 1)
Quarter: 2014Q4

REPORT INFORMATION
  Report Type: Spontaneous
  Country: US (occurrence: US)
  Receive Date: 20141023
  Receipt Date: 20141023
  Transmission Date: 20150529
  Serious: No
  Sender: FDA-Public Use
  Company Number: US-PFIZER INC-2014287809

PATIENT
  Age: 74 Year
  Sex: Female
  Weight: 56.24 kg

DRUGS (1)
  1. DETROL [Suspect]
     Active Substance: TOLTERODINE TARTRATE
     Indication: BLADDER DISORDER
     Dosage: 1 PILL, SINGLE

REACTIONS (2)
  - Dry mouth [Unknown]
  - Feeling abnormal [Unknown]
